FAERS Safety Report 5733935-8 (Version None)
Quarter: 2008Q2

REPORT INFORMATION
  Report Type: 
  Country: None (occurrence: None)
  Receive Date: 20080509
  Receipt Date: 20080429
  Transmission Date: 20081010
  Serious: Yes (Hospitalization)
  Sender: FDA-Public Use
  Company Number: FR-PFIZER INC-2008037493

PATIENT
  Age: 72 Year
  Sex: Female

DRUGS (20)
  1. NEURONTIN [Suspect]
     Indication: PAIN IN EXTREMITY
     Dosage: DAILY DOSE:1200MG-TEXT:DAILY
     Dates: start: 20080301, end: 20080303
  2. LYRICA [Suspect]
     Indication: PAIN IN EXTREMITY
     Dates: start: 20080221, end: 20080301
  3. PROPOFAN [Suspect]
     Route: 048
     Dates: start: 20080229, end: 20080303
  4. PRIMPERAN TAB [Suspect]
     Indication: NAUSEA
     Route: 048
     Dates: start: 20080229, end: 20080303
  5. LOVENOX [Suspect]
     Route: 058
     Dates: start: 20080228, end: 20080306
  6. BI-PROFENID [Concomitant]
     Dosage: DAILY DOSE:300MG
     Route: 048
     Dates: start: 20080228, end: 20080306
  7. BI-PROFENID [Concomitant]
  8. EZETROL [Concomitant]
     Route: 048
  9. TRAMADOL HCL [Concomitant]
     Dosage: DAILY DOSE:100MG
     Route: 048
     Dates: start: 20080228, end: 20080229
  10. ZOPHREN [Concomitant]
     Indication: NAUSEA
  11. FORLAX [Concomitant]
     Indication: CONSTIPATION
  12. DURAGESIC-100 [Concomitant]
     Dates: start: 20080302, end: 20080305
  13. NARCAN [Concomitant]
     Route: 042
  14. AUGMENTIN '125' [Concomitant]
     Dates: start: 20080305, end: 20080306
  15. SOLU-MEDROL [Concomitant]
     Dates: start: 20080305, end: 20080306
  16. OXYCODONE HCL [Concomitant]
     Indication: PAIN IN EXTREMITY
  17. NEXIUM [Concomitant]
     Dates: start: 20080306, end: 20080306
  18. LORAZEPAM [Concomitant]
  19. PRACTAZIN [Concomitant]
  20. KETOPROFEN [Concomitant]
     Dates: start: 20080221

REACTIONS (1)
  - CYTOLYTIC HEPATITIS [None]
